FAERS Safety Report 9200093 (Version 1)
Quarter: 2013Q1

REPORT INFORMATION
  Report Type: Spontaneous
  Country: CH (occurrence: CH)
  Receive Date: 20130329
  Receipt Date: 20130329
  Transmission Date: 20140127
  Serious: Yes (Hospitalization)
  Sender: FDA-Public Use
  Company Number: CH-ROCHE-1207990

PATIENT
  Age: 18 Year
  Sex: Female

DRUGS (6)
  1. ACTEMRA [Suspect]
     Indication: PRODUCT USED FOR UNKNOWN INDICATION
     Route: 040
     Dates: start: 20110620, end: 201301
  2. DAFALGAN [Suspect]
     Indication: PRODUCT USED FOR UNKNOWN INDICATION
     Route: 048
  3. IRFEN [Concomitant]
     Route: 048
     Dates: start: 201301, end: 201301
  4. CELEBREX [Concomitant]
     Route: 048
     Dates: start: 201301, end: 201301
  5. TRAMAL [Concomitant]
     Route: 048
  6. LEVONORGESTREL + ETHINYLOESTRADIOL [Concomitant]
     Route: 048

REACTIONS (3)
  - Hepatitis [Recovering/Resolving]
  - Thrombocytopenia [Recovered/Resolved]
  - Hepatic enzyme increased [Recovering/Resolving]
